FAERS Safety Report 25182869 (Version 1)
Quarter: 2025Q2

REPORT INFORMATION
  Report Type: Spontaneous
  Country: FR (occurrence: FR)
  Receive Date: 20250410
  Receipt Date: 20250410
  Transmission Date: 20250716
  Serious: Yes (Hospitalization, Other)
  Sender: CHEPLAPHARM
  Company Number: None

PATIENT
  Age: 32 Year
  Sex: Male

DRUGS (7)
  1. OLANZAPINE [Suspect]
     Active Substance: OLANZAPINE
  2. COCAINE [Suspect]
     Active Substance: COCAINE
  3. OXYBATE [Suspect]
     Active Substance: OXYBATE
  4. PREGABALIN [Suspect]
     Active Substance: PREGABALIN
  5. OXAZEPAM [Suspect]
     Active Substance: OXAZEPAM
  6. ZOPICLONE [Suspect]
     Active Substance: ZOPICLONE
  7. MIRTAZAPINE [Suspect]
     Active Substance: MIRTAZAPINE

REACTIONS (4)
  - Coma [Recovered/Resolved]
  - Agitation [Recovered/Resolved]
  - Mydriasis [Recovered/Resolved]
  - Drug use disorder [Unknown]

NARRATIVE: CASE EVENT DATE: 20250111
